FAERS Safety Report 4838651-2 (Version None)
Quarter: 2005Q4

REPORT INFORMATION
  Report Type: 
  Country: None (occurrence: None)
  Receive Date: 20051123
  Receipt Date: 20051123
  Transmission Date: 20060501
  Serious: Yes (Life-Threatening, Disabling, Other)
  Sender: FDA-Public Use
  Company Number: None

PATIENT
  Sex: Female
  Weight: 124.7392 kg

DRUGS (1)
  1. ADVAIR DISKUS 250/50 [Suspect]
     Indication: ASTHMA
     Dosage: 1   BID  INJ
     Dates: start: 20020607, end: 20051118

REACTIONS (11)
  - BACTERIAL INFECTION [None]
  - CONTUSION [None]
  - CRYING [None]
  - DRUG INEFFECTIVE [None]
  - FEAR [None]
  - FEELING ABNORMAL [None]
  - MALAISE [None]
  - MUCOUS MEMBRANE DISORDER [None]
  - PAIN [None]
  - PHARYNGOLARYNGEAL PAIN [None]
  - PRODUCTIVE COUGH [None]
